FAERS Safety Report 14607217 (Version 2)
Quarter: 2018Q4

REPORT INFORMATION
  Report Type: Spontaneous
  Country: JP (occurrence: JP)
  Receive Date: 20180307
  Receipt Date: 20181129
  Transmission Date: 20190204
  Serious: Yes (Death, Hospitalization, Other)
  Sender: FDA-Public Use
  Company Number: JP-JNJFOC-20180305677

PATIENT
  Age: 57 Year
  Sex: Male

DRUGS (7)
  1. XARELTO [Suspect]
     Active Substance: RIVAROXABAN
     Indication: EMBOLISM VENOUS
     Route: 048
     Dates: start: 20171017, end: 20180116
  2. XARELTO [Suspect]
     Active Substance: RIVAROXABAN
     Indication: EMBOLISM VENOUS
     Route: 048
     Dates: start: 20170926, end: 20171016
  3. XARELTO [Suspect]
     Active Substance: RIVAROXABAN
     Indication: PULMONARY EMBOLISM
     Route: 048
     Dates: start: 20170926, end: 20171016
  4. XARELTO [Suspect]
     Active Substance: RIVAROXABAN
     Indication: DEEP VEIN THROMBOSIS
     Route: 048
     Dates: start: 20171017, end: 20180116
  5. XARELTO [Suspect]
     Active Substance: RIVAROXABAN
     Indication: PULMONARY EMBOLISM
     Route: 048
     Dates: start: 20171017, end: 20180116
  6. DIPYRIDAMOLE. [Concomitant]
     Active Substance: DIPYRIDAMOLE
     Route: 065
  7. XARELTO [Suspect]
     Active Substance: RIVAROXABAN
     Indication: DEEP VEIN THROMBOSIS
     Route: 048
     Dates: start: 20170926, end: 20171016

REACTIONS (9)
  - Cerebral infarction [Recovered/Resolved]
  - Lung neoplasm malignant [Fatal]
  - Embolism arterial [Unknown]
  - Respiratory failure [Fatal]
  - Cerebral infarction [Unknown]
  - Splenic infarction [Unknown]
  - Drug tolerance [Unknown]
  - Tumour thrombosis [Unknown]
  - Endocarditis noninfective [Recovered/Resolved]

NARRATIVE: CASE EVENT DATE: 20171214
